FAERS Safety Report 5430026-0 (Version None)
Quarter: 2007Q3

REPORT INFORMATION
  Report Type: 
  Country: None (occurrence: None)
  Receive Date: 20070829
  Receipt Date: 20070817
  Transmission Date: 20080115
  Serious: Yes (Hospitalization)
  Sender: FDA-Public Use
  Company Number: AU-PFIZER INC-2007064168

PATIENT
  Sex: Female

DRUGS (1)
  1. ZITHROMAX [Suspect]
     Route: 061
     Dates: start: 20070730, end: 20070730

REACTIONS (6)
  - ACCIDENTAL EXPOSURE [None]
  - PAIN [None]
  - PARAESTHESIA [None]
  - PRURITUS [None]
  - RASH GENERALISED [None]
  - RASH PRURITIC [None]
